FAERS Safety Report 6523140-X (Version None)
Quarter: 2009Q4

REPORT INFORMATION
  Report Type: 
  Country: None (occurrence: None)
  Receive Date: 20091222
  Receipt Date: 20091217
  Transmission Date: 20100525
  Serious: Yes (Hospitalization, Other)
  Sender: FDA-Public Use
  Company Number: 2009SP023331

PATIENT
  Age: 36 Year
  Sex: Female
  Weight: 51 kg

DRUGS (8)
  1. FOLLISTIM [Suspect]
     Indication: IN VITRO FERTILISATION
     Dosage: 150 IU, IM
     Route: 030
     Dates: start: 20080609, end: 20080614
  2. SUPRECUR [Concomitant]
  3. HMG FUJI SEIYAKU [Concomitant]
  4. PROFASI HP [Concomitant]
  5. NORGESTREL AND ETHINYL ESTRADIOL [Concomitant]
  6. PROGESTON FUJI [Concomitant]
  7. GONATROPIN [Concomitant]
  8. PROGE DEPOT [Concomitant]

REACTIONS (5)
  - ABORTION SPONTANEOUS [None]
  - ANTIBODY TEST POSITIVE [None]
  - ANTIPHOSPHOLIPID SYNDROME [None]
  - CARDIOLIPIN ANTIBODY POSITIVE [None]
  - PREGNANCY [None]
